FAERS Safety Report 7385766-3 (Version None)
Quarter: 2011Q1

REPORT INFORMATION
  Report Type: 
  Country: None (occurrence: None)
  Receive Date: 20110331
  Receipt Date: 20100914
  Transmission Date: 20110831
  Serious: Yes (Hospitalization)
  Sender: FDA-Public Use
  Company Number: US-BAYER-201029484NA

PATIENT
  Weight: 92.063 kg

DRUGS (9)
  1. FLOVENT [Concomitant]
  2. ALBUTEROL [Concomitant]
  3. YASMIN [Suspect]
     Indication: ORAL CONTRACEPTION
     Dosage: UNK
     Dates: start: 20050101, end: 20100101
  4. YASMIN [Suspect]
     Indication: PREMENSTRUAL SYNDROME
  5. OCELLA [Suspect]
     Indication: ORAL CONTRACEPTION
  6. MIDRIN [Concomitant]
  7. YAZ [Suspect]
     Dosage: UNK
     Dates: start: 20050101, end: 20100101
  8. OCELLA [Suspect]
     Indication: PREMENSTRUAL SYNDROME
     Dosage: UNK
     Dates: start: 20050101, end: 20100101
  9. NORTRIPTYLINE HCL [Concomitant]
     Indication: TENSION HEADACHE

REACTIONS (3)
  - GALLBLADDER DISORDER [None]
  - INJURY [None]
  - CHOLECYSTITIS CHRONIC [None]
